FAERS Safety Report 20322154 (Version 2)
Quarter: 2022Q1

REPORT INFORMATION
  Report Type: Report from Study
  Country: CA (occurrence: CA)
  Receive Date: 20220111
  Receipt Date: 20220122
  Transmission Date: 20220423
  Serious: Yes (Death, Other)
  Sender: FDA-Public Use
  Company Number: CA-BAYER-2022A002983

PATIENT

DRUGS (2)
  1. EYLEA [Suspect]
     Active Substance: AFLIBERCEPT
     Indication: Neovascular age-related macular degeneration
     Dosage: 40 MG/ML ; FIRST INJECTION
     Route: 031
     Dates: start: 20170112, end: 20170112
  2. EYLEA [Suspect]
     Active Substance: AFLIBERCEPT
     Dosage: 40 MG/ML ; LAST INJECTION
     Route: 031
     Dates: start: 20180212, end: 20180212

REACTIONS (1)
  - Death [Fatal]
